FAERS Safety Report 25846478 (Version 1)
Quarter: 2025Q3

REPORT INFORMATION
  Report Type: Spontaneous
  Country: EU (occurrence: EU)
  Receive Date: 20250925
  Receipt Date: 20250925
  Transmission Date: 20251020
  Serious: Yes (Other)
  Sender: MYLAN
  Company Number: None

PATIENT
  Age: 85 Year
  Sex: Female
  Weight: 65 kg

DRUGS (28)
  1. SERTRALINE [Suspect]
     Active Substance: SERTRALINE HYDROCHLORIDE
     Indication: Anxiety disorder
     Dosage: 25 MILLIGRAM, QD (1 PIECE ONCE A DAY)
     Dates: start: 20250520
  2. SERTRALINE [Suspect]
     Active Substance: SERTRALINE HYDROCHLORIDE
     Dosage: 25 MILLIGRAM, QD (1 PIECE ONCE A DAY)
     Dates: start: 20250520
  3. SERTRALINE [Suspect]
     Active Substance: SERTRALINE HYDROCHLORIDE
     Dosage: 25 MILLIGRAM, QD (1 PIECE ONCE A DAY)
     Route: 048
     Dates: start: 20250520
  4. SERTRALINE [Suspect]
     Active Substance: SERTRALINE HYDROCHLORIDE
     Dosage: 25 MILLIGRAM, QD (1 PIECE ONCE A DAY)
     Route: 048
     Dates: start: 20250520
  5. SERTRALINE [Suspect]
     Active Substance: SERTRALINE HYDROCHLORIDE
     Dosage: 100 MILLIGRAM, QD (1 PIECE ONCE A DAY)
     Dates: start: 20250616
  6. SERTRALINE [Suspect]
     Active Substance: SERTRALINE HYDROCHLORIDE
     Dosage: 100 MILLIGRAM, QD (1 PIECE ONCE A DAY)
     Dates: start: 20250616
  7. SERTRALINE [Suspect]
     Active Substance: SERTRALINE HYDROCHLORIDE
     Dosage: 100 MILLIGRAM, QD (1 PIECE ONCE A DAY)
     Route: 048
     Dates: start: 20250616
  8. SERTRALINE [Suspect]
     Active Substance: SERTRALINE HYDROCHLORIDE
     Dosage: 100 MILLIGRAM, QD (1 PIECE ONCE A DAY)
     Route: 048
     Dates: start: 20250616
  9. DILTIAZEM [Concomitant]
     Active Substance: DILTIAZEM
  10. DILTIAZEM [Concomitant]
     Active Substance: DILTIAZEM
     Route: 048
  11. DILTIAZEM [Concomitant]
     Active Substance: DILTIAZEM
     Route: 048
  12. DILTIAZEM [Concomitant]
     Active Substance: DILTIAZEM
  13. ASPIRIN [Concomitant]
     Active Substance: ASPIRIN
  14. ASPIRIN [Concomitant]
     Active Substance: ASPIRIN
     Route: 048
  15. ASPIRIN [Concomitant]
     Active Substance: ASPIRIN
     Route: 048
  16. ASPIRIN [Concomitant]
     Active Substance: ASPIRIN
  17. ISOSORBIDE MONONITRATE [Concomitant]
     Active Substance: ISOSORBIDE MONONITRATE
  18. ISOSORBIDE MONONITRATE [Concomitant]
     Active Substance: ISOSORBIDE MONONITRATE
     Route: 048
  19. ISOSORBIDE MONONITRATE [Concomitant]
     Active Substance: ISOSORBIDE MONONITRATE
     Route: 048
  20. ISOSORBIDE MONONITRATE [Concomitant]
     Active Substance: ISOSORBIDE MONONITRATE
  21. PANTOPRAZOLE SODIUM [Concomitant]
     Active Substance: PANTOPRAZOLE SODIUM
  22. PANTOPRAZOLE SODIUM [Concomitant]
     Active Substance: PANTOPRAZOLE SODIUM
     Route: 048
  23. PANTOPRAZOLE SODIUM [Concomitant]
     Active Substance: PANTOPRAZOLE SODIUM
     Route: 048
  24. PANTOPRAZOLE SODIUM [Concomitant]
     Active Substance: PANTOPRAZOLE SODIUM
  25. CRESTOR [Concomitant]
     Active Substance: ROSUVASTATIN CALCIUM
  26. CRESTOR [Concomitant]
     Active Substance: ROSUVASTATIN CALCIUM
     Route: 048
  27. CRESTOR [Concomitant]
     Active Substance: ROSUVASTATIN CALCIUM
     Route: 048
  28. CRESTOR [Concomitant]
     Active Substance: ROSUVASTATIN CALCIUM

REACTIONS (1)
  - Colitis [Recovered/Resolved]
